FAERS Safety Report 8186725-3 (Version None)
Quarter: 2012Q1

REPORT INFORMATION
  Report Type: 
  Country: None (occurrence: None)
  Receive Date: 20120301
  Receipt Date: 20120223
  Transmission Date: 20120608
  Serious: Yes (Hospitalization, Other)
  Sender: FDA-Public Use
  Company Number: 2010SP004039

PATIENT
  Age: 21 Year
  Sex: Female

DRUGS (10)
  1. PREVACID [Concomitant]
  2. NUVARING [Suspect]
     Indication: CONTRACEPTION
     Dates: start: 20040501, end: 20040627
  3. PAXIL [Concomitant]
  4. SYNTHROID [Concomitant]
  5. IRON [Concomitant]
  6. SUPER B COMPLEX [Concomitant]
  7. NAPROXEN [Concomitant]
  8. CLARITIN [Concomitant]
  9. BUSPAR [Concomitant]
  10. HYDROCHLOROTHIAZIDE [Concomitant]

REACTIONS (16)
  - PREGNANCY [None]
  - COCCYDYNIA [None]
  - CHOLECYSTITIS ACUTE [None]
  - GALLBLADDER DISORDER [None]
  - ROAD TRAFFIC ACCIDENT [None]
  - SINUS TACHYCARDIA [None]
  - OVARIAN CYST [None]
  - PULMONARY EMBOLISM [None]
  - MATERNAL EXPOSURE DURING PREGNANCY [None]
  - PNEUMONIA [None]
  - BACK PAIN [None]
  - THROMBOSIS [None]
  - MENOMETRORRHAGIA [None]
  - CHOLELITHIASIS [None]
  - DYSFUNCTIONAL UTERINE BLEEDING [None]
  - CALCULUS URETERIC [None]
